FAERS Safety Report 9671651 (Version 1)
Quarter: 2013Q4

REPORT INFORMATION
  Report Type: Spontaneous
  Country: US (occurrence: US)
  Receive Date: 20131106
  Receipt Date: 20131106
  Transmission Date: 20140711
  Serious: Yes (Other)
  Sender: FDA-Public Use
  Company Number: US-PFIZER INC-2013315437

PATIENT
  Age: 48 Year
  Sex: Female
  Weight: 47.6 kg

DRUGS (3)
  1. LYRICA [Suspect]
     Indication: FIBROMYALGIA
     Dosage: 150 MG (BY TAKING TWO CAPSULES OF 75MG AT A TIME), 1X/DAY
     Route: 048
  2. METHOTREXATE [Concomitant]
     Indication: RHEUMATOID ARTHRITIS
     Dosage: UNK
  3. FOLIC ACID [Concomitant]
     Dosage: UNK, AS NEEDED

REACTIONS (2)
  - Drug dose omission [Unknown]
  - Rheumatoid arthritis [Unknown]
